FAERS Safety Report 10970443 (Version 2)
Quarter: 2015Q2

REPORT INFORMATION
  Report Type: Report from Study
  Country: US (occurrence: US)
  Receive Date: 20150331
  Receipt Date: 20150511
  Transmission Date: 20150821
  Serious: Yes (Hospitalization)
  Sender: FDA-Public Use
  Company Number: US-SA-2015SA037280

PATIENT
  Age: 61 Year
  Sex: Female
  Weight: 54.88 kg

DRUGS (1)
  1. AUBAGIO [Suspect]
     Active Substance: TERIFLUNOMIDE
     Indication: MULTIPLE SCLEROSIS
     Route: 048
     Dates: start: 20141028, end: 20150319

REACTIONS (5)
  - Erythema [Unknown]
  - Arthralgia [Unknown]
  - Dermatomyositis [Unknown]
  - Erythema of eyelid [Unknown]
  - Pain [Unknown]

NARRATIVE: CASE EVENT DATE: 2015
